FAERS Safety Report 6409940-5 (Version None)
Quarter: 2009Q4

REPORT INFORMATION
  Report Type: 
  Country: None (occurrence: None)
  Receive Date: 20091021
  Receipt Date: 20091021
  Transmission Date: 20100525
  Serious: Yes (Other)
  Sender: FDA-Public Use
  Company Number: None

PATIENT
  Sex: Female
  Weight: 104.3273 kg

DRUGS (2)
  1. SERTRALINE HCL [Suspect]
     Indication: ANXIETY
     Dosage: 25MG ONCE DAILY PO
     Route: 048
     Dates: start: 20091005, end: 20091011
  2. SERTRALINE HCL [Suspect]
     Indication: DEPRESSION
     Dosage: 25MG ONCE DAILY PO
     Route: 048
     Dates: start: 20091005, end: 20091011

REACTIONS (1)
  - ANORGASMIA [None]
